FAERS Safety Report 25593081 (Version 4)
Quarter: 2025Q3

REPORT INFORMATION
  Report Type: Spontaneous
  Country: US (occurrence: US)
  Receive Date: 20250722
  Receipt Date: 20250923
  Transmission Date: 20251021
  Serious: Yes (Other)
  Sender: BRISTOL-MYERS SQUIBB COMPANY
  Company Number: US-BRISTOL-MYERS SQUIBB COMPANY-2025-102366

PATIENT
  Age: 66 Year
  Sex: Female

DRUGS (4)
  1. POMALYST [Suspect]
     Active Substance: POMALIDOMIDE
     Indication: Plasma cell myeloma
     Dosage: SEE EVENT
     Dates: start: 202506
  2. POMALYST [Suspect]
     Active Substance: POMALIDOMIDE
     Dosage: TAKE 1 CAPSULE BY MOUTH ON DAYS 1, 8, 15 OF A 28 DAY CYCLE. TAKE ONE TIME A DAY
     Dates: start: 202506
  3. POMALYST [Suspect]
     Active Substance: POMALIDOMIDE
     Dates: start: 202506
  4. NINLARO [Suspect]
     Active Substance: IXAZOMIB CITRATE
     Indication: Plasma cell myeloma

REACTIONS (8)
  - Pruritus [Unknown]
  - Rash [Recovered/Resolved]
  - Neuropathy peripheral [Unknown]
  - Paraesthesia [Unknown]
  - Fibromyalgia [Unknown]
  - Peripheral swelling [Unknown]
  - Burning sensation [Unknown]
  - Abdominal pain [Unknown]

NARRATIVE: CASE EVENT DATE: 20250801
